FAERS Safety Report 5766878-4 (Version None)
Quarter: 2008Q2

REPORT INFORMATION
  Report Type: 
  Country: None (occurrence: None)
  Receive Date: 20080612
  Receipt Date: 20080604
  Transmission Date: 20081010
  Serious: Yes (Death, Hospitalization)
  Sender: FDA-Public Use
  Company Number: JP-AMGEN-US285061

PATIENT
  Age: 58 Year
  Sex: Female

DRUGS (2)
  1. ENBREL [Suspect]
     Indication: RHEUMATOID ARTHRITIS
     Route: 058
     Dates: start: 20060724, end: 20080521
  2. CORTICOSTEROID NOS [Concomitant]
     Route: 065

REACTIONS (2)
  - JOINT DISLOCATION [None]
  - VERTEBRAL ARTERY OCCLUSION [None]
